FAERS Safety Report 14546482 (Version 1)
Quarter: 2018Q1

REPORT INFORMATION
  Report Type: Report from Study
  Country: US (occurrence: US)
  Receive Date: 20180219
  Receipt Date: 20180219
  Transmission Date: 20180509
  Serious: Yes (Hospitalization)
  Sender: FDA-Public Use
  Company Number: US-GILEAD-2018-0321288

PATIENT
  Age: 15 Year
  Sex: Female

DRUGS (2)
  1. AMBRISENTAN [Suspect]
     Active Substance: AMBRISENTAN
     Indication: PRODUCT USED FOR UNKNOWN INDICATION
     Dosage: 10 MG, QD
     Route: 065
     Dates: start: 20171219
  2. ADCIRCA [Concomitant]
     Active Substance: TADALAFIL

REACTIONS (2)
  - Off label use [Not Recovered/Not Resolved]
  - Bronchial secretion retention [Unknown]

NARRATIVE: CASE EVENT DATE: 20171219
